FAERS Safety Report 7230674-1 (Version None)
Quarter: 2011Q1

REPORT INFORMATION
  Report Type: 
  Country: None (occurrence: None)
  Receive Date: 20110118
  Receipt Date: 20110106
  Transmission Date: 20110831
  Serious: Yes (Hospitalization, Other)
  Sender: FDA-Public Use
  Company Number: PHHY2011US00729

PATIENT

DRUGS (5)
  1. SYNTHROID [Concomitant]
     Indication: HYPERTHYROIDISM
     Dosage: 25 MG, UNK
  2. ZOCOR [Concomitant]
     Indication: LIPIDS INCREASED
     Dosage: 20 MG, UNK
  3. WARFARIN SODIUM [Concomitant]
     Indication: ATRIAL FIBRILLATION
     Dosage: 2.5 MG, DAILY
  4. TASIGNA [Suspect]
  5. METOPROLOL [Concomitant]
     Indication: BLOOD PRESSURE
     Dosage: 5MG AM / 25MG PM

REACTIONS (8)
  - ASTHENIA [None]
  - RENAL FAILURE ACUTE [None]
  - FATIGUE [None]
  - MYALGIA [None]
  - MUSCULAR WEAKNESS [None]
  - GAIT DISTURBANCE [None]
  - RHABDOMYOLYSIS [None]
  - CHROMATURIA [None]
